FAERS Safety Report 5251004-0 (Version None)
Quarter: 2007Q1

REPORT INFORMATION
  Report Type: 
  Country: None (occurrence: None)
  Receive Date: 20070228
  Receipt Date: 20070219
  Transmission Date: 20070707
  Serious: Yes (Other)
  Sender: FDA-Public Use
  Company Number: FR-SANOFI-SYNTHELABO-A02200700062

PATIENT
  Sex: Female

DRUGS (5)
  1. ANTIHYPERTENSIVE DRUG NOS [Concomitant]
     Indication: HYPERTENSION
     Dosage: UNK
     Route: 048
  2. OMEPRAZOLE [Concomitant]
     Indication: OESOPHAGITIS
     Dosage: UNK
     Route: 048
  3. ANTIDIABETIC ORAL NOS [Concomitant]
     Indication: DIABETES MELLITUS NON-INSULIN-DEPENDENT
     Dosage: UNK
     Route: 048
  4. CORTICOSTEROIDS NOS [Concomitant]
     Indication: RESPIRATORY FAILURE
     Dosage: UNK
     Route: 065
     Dates: start: 19760101
  5. SKELID [Suspect]
     Indication: OSTEITIS DEFORMANS
     Route: 048
     Dates: start: 20030101, end: 20061201

REACTIONS (1)
  - AORTIC VALVE STENOSIS [None]
